FAERS Safety Report 13843344 (Version 1)
Quarter: 2017Q3

REPORT INFORMATION
  Report Type: Spontaneous
  Country: IN (occurrence: IN)
  Receive Date: 20170808
  Receipt Date: 20170808
  Transmission Date: 20171127
  Serious: Yes (Death, Life-Threatening)
  Sender: FDA-Public Use
  Company Number: IN-PFIZER INC-2017338281

PATIENT
  Age: 43 Year
  Sex: Male

DRUGS (1)
  1. PHENYTOIN. [Suspect]
     Active Substance: PHENYTOIN
     Indication: EPILEPSY
     Dosage: 100 MG, 3X/DAY (TABLET)
     Route: 048

REACTIONS (3)
  - Drug hypersensitivity [Fatal]
  - Myocarditis [Fatal]
  - Stevens-Johnson syndrome [Unknown]
